FAERS Safety Report 18371164 (Version 36)
Quarter: 2024Q3

REPORT INFORMATION
  Report Type: Spontaneous
  Country: CA (occurrence: CA)
  Receive Date: 20201012
  Receipt Date: 20240927
  Transmission Date: 20241017
  Serious: Yes (Life-Threatening, Hospitalization, Other)
  Sender: BAUSCH AND LOMB
  Company Number: CA-BAUSCH-BL-2019-025011

PATIENT
  Age: 56 Year
  Sex: Male

DRUGS (522)
  1. CICLOPIROX [Suspect]
     Active Substance: CICLOPIROX
     Indication: Prinzmetal angina
     Dosage: CICLOPIROX
     Route: 065
  2. CICLOPIROX [Suspect]
     Active Substance: CICLOPIROX
     Indication: Migraine
     Dosage: CICLOPIROX
     Route: 065
  3. CICLOPIROX [Suspect]
     Active Substance: CICLOPIROX
     Dosage: CICLOPIROX OLAMINE
     Route: 065
  4. CICLOPIROX [Suspect]
     Active Substance: CICLOPIROX
     Dosage: CICLOPIROX OLAMINE
     Route: 065
  5. DILTIAZEM [Suspect]
     Active Substance: DILTIAZEM
     Indication: Prinzmetal angina
     Route: 065
  6. DILTIAZEM [Suspect]
     Active Substance: DILTIAZEM
     Indication: Migraine
     Route: 048
  7. DILTIAZEM [Suspect]
     Active Substance: DILTIAZEM
     Route: 065
  8. DILTIAZEM [Suspect]
     Active Substance: DILTIAZEM
     Route: 065
  9. DILTIAZEM [Suspect]
     Active Substance: DILTIAZEM
     Route: 048
  10. DILTIAZEM [Suspect]
     Active Substance: DILTIAZEM
     Route: 048
  11. DILTIAZEM [Suspect]
     Active Substance: DILTIAZEM
     Route: 065
  12. DILTIAZEM [Suspect]
     Active Substance: DILTIAZEM
     Route: 048
  13. DILTIAZEM [Suspect]
     Active Substance: DILTIAZEM
     Dosage: DILTIAZEM?HYDROCHLORIDE
     Route: 065
  14. DILTIAZEM [Suspect]
     Active Substance: DILTIAZEM
     Route: 048
  15. DILTIAZEM [Suspect]
     Active Substance: DILTIAZEM
     Dosage: DILTIAZEM?HYDROCHLORIDE
     Route: 048
  16. HYDROCORTISONE [Suspect]
     Active Substance: HYDROCORTISONE\HYDROCORTISONE ACETATE
     Indication: Product used for unknown indication
     Dosage: NOT SPECIFIED
     Route: 061
  17. HYDROCORTISONE [Suspect]
     Active Substance: HYDROCORTISONE\HYDROCORTISONE ACETATE
     Indication: Prinzmetal angina
     Route: 065
  18. HYDROCORTISONE [Suspect]
     Active Substance: HYDROCORTISONE\HYDROCORTISONE ACETATE
     Indication: Migraine
     Dosage: NOT SPECIFIED
     Route: 065
  19. HYDROCORTISONE [Suspect]
     Active Substance: HYDROCORTISONE\HYDROCORTISONE ACETATE
     Route: 061
  20. HYDROCORTISONE [Suspect]
     Active Substance: HYDROCORTISONE\HYDROCORTISONE ACETATE
     Dosage: NOT SPECIFIED
     Route: 061
  21. HYDROCORTISONE [Suspect]
     Active Substance: HYDROCORTISONE\HYDROCORTISONE ACETATE
     Route: 065
  22. HYDROCORTISONE [Suspect]
     Active Substance: HYDROCORTISONE\HYDROCORTISONE ACETATE
     Route: 061
  23. HYDROCORTISONE [Suspect]
     Active Substance: HYDROCORTISONE\HYDROCORTISONE ACETATE
     Dosage: HYDROCORTISONE?BUTYRATE
     Route: 065
  24. HYDROCORTISONE [Suspect]
     Active Substance: HYDROCORTISONE\HYDROCORTISONE ACETATE
     Dosage: HYDROCORTISONE BUTYRATE
     Route: 061
  25. HYDROCORTISONE [Suspect]
     Active Substance: HYDROCORTISONE\HYDROCORTISONE ACETATE
     Dosage: HYDROCORTISONE PROBUTATE
     Route: 061
  26. RAMIPRIL [Suspect]
     Active Substance: RAMIPRIL
     Indication: Product used for unknown indication
     Route: 065
  27. RAMIPRIL [Suspect]
     Active Substance: RAMIPRIL
     Indication: Product use issue
     Dosage: NOT SPECIFIED
     Route: 065
  28. RAMIPRIL [Suspect]
     Active Substance: RAMIPRIL
     Route: 065
  29. RAMIPRIL [Suspect]
     Active Substance: RAMIPRIL
     Route: 048
  30. RAMIPRIL [Suspect]
     Active Substance: RAMIPRIL
     Dosage: NOT SPECIFIED
     Route: 065
  31. RAMIPRIL [Suspect]
     Active Substance: RAMIPRIL
     Dosage: NOT SPECIFIED
     Route: 065
  32. RAMIPRIL [Suspect]
     Active Substance: RAMIPRIL
     Route: 048
  33. RAMIPRIL [Suspect]
     Active Substance: RAMIPRIL
     Route: 048
  34. RAMIPRIL [Suspect]
     Active Substance: RAMIPRIL
     Route: 048
  35. RAMIPRIL [Suspect]
     Active Substance: RAMIPRIL
     Route: 065
  36. RAMIPRIL [Suspect]
     Active Substance: RAMIPRIL
     Route: 065
  37. RAMIPRIL [Suspect]
     Active Substance: RAMIPRIL
     Route: 048
  38. RAMIPRIL [Suspect]
     Active Substance: RAMIPRIL
     Route: 065
  39. RAMIPRIL [Suspect]
     Active Substance: RAMIPRIL
     Dosage: NOT SPECIFIED
     Route: 065
  40. RAMIPRIL [Suspect]
     Active Substance: RAMIPRIL
     Route: 065
  41. TESTOSTERONE [Suspect]
     Active Substance: TESTOSTERONE
     Indication: Product used for unknown indication
     Dosage: TESTOSTERONE ENANTHATE
     Route: 065
  42. TESTOSTERONE [Suspect]
     Active Substance: TESTOSTERONE
     Dosage: LIQUID INTRAMUSCULAR, TESTOSTERONE ENANTHATE
     Route: 030
  43. TESTOSTERONE [Suspect]
     Active Substance: TESTOSTERONE
     Dosage: LIQUID INTRAMUSCULAR, TESTOSTERONE ENANTHATE
     Route: 030
  44. TESTOSTERONE [Suspect]
     Active Substance: TESTOSTERONE
     Dosage: NOT SPECIFIED
     Route: 065
  45. TESTOSTERONE [Suspect]
     Active Substance: TESTOSTERONE
     Dosage: NOT SPECIFIED
  46. DELATESTRYL [Suspect]
     Active Substance: TESTOSTERONE ENANTHATE
     Indication: Prinzmetal angina
     Dosage: SOLUTION INTRAMUSCULAR (FILL SIZE: 5 ML)
     Route: 030
  47. DELATESTRYL [Suspect]
     Active Substance: TESTOSTERONE ENANTHATE
     Indication: Migraine
     Route: 030
  48. DELATESTRYL [Suspect]
     Active Substance: TESTOSTERONE ENANTHATE
     Indication: Product used for unknown indication
     Route: 030
  49. DELATESTRYL [Suspect]
     Active Substance: TESTOSTERONE ENANTHATE
     Route: 030
  50. DELATESTRYL [Suspect]
     Active Substance: TESTOSTERONE ENANTHATE
     Route: 030
  51. DELATESTRYL [Suspect]
     Active Substance: TESTOSTERONE ENANTHATE
     Route: 030
  52. DELATESTRYL [Suspect]
     Active Substance: TESTOSTERONE ENANTHATE
     Dosage: SOLUTION INTRAMUSCULAR
     Route: 030
  53. DELATESTRYL [Suspect]
     Active Substance: TESTOSTERONE ENANTHATE
     Route: 065
  54. DELATESTRYL [Suspect]
     Active Substance: TESTOSTERONE ENANTHATE
     Route: 030
  55. DELATESTRYL [Suspect]
     Active Substance: TESTOSTERONE ENANTHATE
     Route: 065
  56. DELATESTRYL [Suspect]
     Active Substance: TESTOSTERONE ENANTHATE
     Route: 065
  57. DELATESTRYL [Suspect]
     Active Substance: TESTOSTERONE ENANTHATE
     Route: 065
  58. DELATESTRYL [Suspect]
     Active Substance: TESTOSTERONE ENANTHATE
     Route: 065
  59. DELATESTRYL [Suspect]
     Active Substance: TESTOSTERONE ENANTHATE
     Dosage: SOLUTION INTRAMUSCULAR
     Route: 030
  60. DELATESTRYL [Suspect]
     Active Substance: TESTOSTERONE ENANTHATE
     Route: 030
  61. DELATESTRYL [Suspect]
     Active Substance: TESTOSTERONE ENANTHATE
     Route: 065
  62. DELATESTRYL [Suspect]
     Active Substance: TESTOSTERONE ENANTHATE
     Dosage: SOLUTION INTRAMUSCULAR
     Route: 030
  63. DELATESTRYL [Suspect]
     Active Substance: TESTOSTERONE ENANTHATE
     Dosage: 2 ADMINISTRATIONS GIVEN
     Route: 030
  64. DELATESTRYL [Suspect]
     Active Substance: TESTOSTERONE ENANTHATE
     Route: 065
  65. DELATESTRYL [Suspect]
     Active Substance: TESTOSTERONE ENANTHATE
     Dosage: 5 ADMINISTRATION GIVEN
     Route: 065
  66. NITROGLYCERIN [Suspect]
     Active Substance: NITROGLYCERIN
     Indication: Prinzmetal angina
     Dosage: GLYCERYL TRINITRATE
     Route: 065
  67. NITROGLYCERIN [Suspect]
     Active Substance: NITROGLYCERIN
     Indication: Migraine
     Dosage: GLYCERYL TRINITRATE
     Route: 065
  68. NITROGLYCERIN [Suspect]
     Active Substance: NITROGLYCERIN
     Dosage: GLYCERYL TRINITRATE
     Route: 065
  69. NITROGLYCERIN [Suspect]
     Active Substance: NITROGLYCERIN
     Dosage: NITROGLYCERIN
     Route: 065
  70. NITROGLYCERIN [Suspect]
     Active Substance: NITROGLYCERIN
     Dosage: NITROGLYCERIN
     Route: 065
  71. NITROGLYCERIN [Suspect]
     Active Substance: NITROGLYCERIN
     Dosage: NITROGLYCERIN
     Route: 065
  72. NITROGLYCERIN [Suspect]
     Active Substance: NITROGLYCERIN
     Dosage: GLYCERYL TRINITRATE
     Route: 065
  73. HYDROCORTISONE [Suspect]
     Active Substance: HYDROCORTISONE\HYDROCORTISONE ACETATE
     Indication: Product used for unknown indication
     Route: 065
  74. HYDROCORTISONE [Suspect]
     Active Substance: HYDROCORTISONE\HYDROCORTISONE ACETATE
     Route: 061
  75. FLOMAX [Suspect]
     Active Substance: TAMSULOSIN HYDROCHLORIDE
     Indication: Prinzmetal angina
     Dosage: CONTROLLED, EXTENDED RELEASE
     Route: 048
  76. FLOMAX [Suspect]
     Active Substance: TAMSULOSIN HYDROCHLORIDE
     Indication: Migraine
     Route: 048
  77. FLOMAX [Suspect]
     Active Substance: TAMSULOSIN HYDROCHLORIDE
     Route: 065
  78. FLOMAX [Suspect]
     Active Substance: TAMSULOSIN HYDROCHLORIDE
     Route: 048
  79. FLOMAX [Suspect]
     Active Substance: TAMSULOSIN HYDROCHLORIDE
     Route: 048
  80. FLOMAX [Suspect]
     Active Substance: TAMSULOSIN HYDROCHLORIDE
     Route: 065
  81. TRAZODONE [Suspect]
     Active Substance: TRAZODONE HYDROCHLORIDE
     Indication: Prinzmetal angina
     Dosage: TRAZODONE
     Route: 065
  82. TRAZODONE [Suspect]
     Active Substance: TRAZODONE HYDROCHLORIDE
     Indication: Migraine
     Dosage: TRAZODONE
     Route: 065
  83. TRAZODONE [Suspect]
     Active Substance: TRAZODONE HYDROCHLORIDE
     Indication: Product used for unknown indication
     Dosage: TRAZODONE
     Route: 065
  84. TRAZODONE [Suspect]
     Active Substance: TRAZODONE HYDROCHLORIDE
     Dosage: TRAZODONE HYDROCHLORIDE
     Route: 065
  85. TRAZODONE [Suspect]
     Active Substance: TRAZODONE HYDROCHLORIDE
     Dosage: TRAZODONE HYDROCHLORIDE
     Route: 065
  86. TRAZODONE [Suspect]
     Active Substance: TRAZODONE HYDROCHLORIDE
     Dosage: TRAZODONE HYDROCHLORIDE
     Route: 048
  87. TRAZODONE [Suspect]
     Active Substance: TRAZODONE HYDROCHLORIDE
     Dosage: TRAZODONE HYDROCHLORIDE
     Route: 065
  88. TRAZODONE [Suspect]
     Active Substance: TRAZODONE HYDROCHLORIDE
     Dosage: TRAZODONE HYDROCHLORIDE
     Route: 065
  89. TRAZODONE [Suspect]
     Active Substance: TRAZODONE HYDROCHLORIDE
     Dosage: TRAZODONE HYDROCHLORIDE
     Route: 048
  90. DEXILANT [Suspect]
     Active Substance: DEXLANSOPRAZOLE
     Indication: Prinzmetal angina
     Dosage: CAPSULE, DELAYED RELEASE
     Route: 065
  91. DEXILANT [Suspect]
     Active Substance: DEXLANSOPRAZOLE
     Indication: Migraine
     Route: 065
  92. DEXILANT [Suspect]
     Active Substance: DEXLANSOPRAZOLE
     Indication: Product used for unknown indication
     Dosage: CAPSULE, DELAYED RELEASE
     Route: 065
  93. DEXILANT [Suspect]
     Active Substance: DEXLANSOPRAZOLE
     Route: 048
  94. DEXILANT [Suspect]
     Active Substance: DEXLANSOPRAZOLE
     Route: 065
  95. DEXILANT [Suspect]
     Active Substance: DEXLANSOPRAZOLE
     Route: 065
  96. DEXILANT [Suspect]
     Active Substance: DEXLANSOPRAZOLE
     Route: 065
  97. DEXILANT [Suspect]
     Active Substance: DEXLANSOPRAZOLE
     Dosage: 5 ADMINISTRATION GIVEN
     Route: 065
  98. DEXILANT [Suspect]
     Active Substance: DEXLANSOPRAZOLE
     Dosage: CAPSULE, DELAYED RELEASE
     Route: 065
  99. DEXILANT [Suspect]
     Active Substance: DEXLANSOPRAZOLE
     Dosage: 2 ADMINISTRATIONS GIVEN
     Route: 048
  100. HYDROCORTISONE [Suspect]
     Active Substance: HYDROCORTISONE\HYDROCORTISONE ACETATE
     Indication: Product used for unknown indication
     Dosage: NOT SPECIFIED
     Route: 065
  101. HYDROCORTISONE [Suspect]
     Active Substance: HYDROCORTISONE\HYDROCORTISONE ACETATE
     Dosage: NOT SPECIFIED
     Route: 061
  102. HYDROCORTISONE [Suspect]
     Active Substance: HYDROCORTISONE\HYDROCORTISONE ACETATE
     Route: 061
  103. HYDROCORTISONE [Suspect]
     Active Substance: HYDROCORTISONE\HYDROCORTISONE ACETATE
     Route: 065
  104. HYDROCORTISONE [Suspect]
     Active Substance: HYDROCORTISONE\HYDROCORTISONE ACETATE
     Route: 065
  105. HYDROCORTISONE [Suspect]
     Active Substance: HYDROCORTISONE\HYDROCORTISONE ACETATE
     Route: 061
  106. ESCITALOPRAM [Suspect]
     Active Substance: ESCITALOPRAM OXALATE
     Indication: Prinzmetal angina
     Dosage: ESCITALOPRAM
     Route: 065
  107. ESCITALOPRAM [Suspect]
     Active Substance: ESCITALOPRAM OXALATE
     Indication: Migraine
     Dosage: ESCITALOPRAM
     Route: 065
  108. ESCITALOPRAM [Suspect]
     Active Substance: ESCITALOPRAM OXALATE
     Dosage: ESCITALOPRAM OXALATE
     Route: 065
  109. ESCITALOPRAM [Suspect]
     Active Substance: ESCITALOPRAM OXALATE
     Dosage: ESCITALOPRAM OXALATE
     Route: 065
  110. ESCITALOPRAM [Suspect]
     Active Substance: ESCITALOPRAM OXALATE
     Dosage: ESCITALOPRAM OXALATE
     Route: 065
  111. ESCITALOPRAM [Suspect]
     Active Substance: ESCITALOPRAM OXALATE
     Dosage: ESCITALOPRAM OXALATE
     Route: 065
  112. ESCITALOPRAM [Suspect]
     Active Substance: ESCITALOPRAM OXALATE
     Dosage: ESCITALOPRAM OXALATE
     Route: 065
  113. ESCITALOPRAM [Suspect]
     Active Substance: ESCITALOPRAM OXALATE
     Dosage: ESCITALOPRAM OXALATE
     Route: 030
  114. ESCITALOPRAM [Suspect]
     Active Substance: ESCITALOPRAM OXALATE
     Dosage: ESCITALOPRAM OXALATE
     Route: 065
  115. METOCLOPRAMIDE [Suspect]
     Active Substance: METOCLOPRAMIDE
     Indication: Migraine
     Route: 065
  116. METOCLOPRAMIDE [Suspect]
     Active Substance: METOCLOPRAMIDE
     Indication: Prinzmetal angina
     Route: 048
  117. METOCLOPRAMIDE [Suspect]
     Active Substance: METOCLOPRAMIDE
     Route: 065
  118. METOCLOPRAMIDE [Suspect]
     Active Substance: METOCLOPRAMIDE
     Dosage: NOT SPECIFIED
     Route: 065
  119. METOCLOPRAMIDE [Suspect]
     Active Substance: METOCLOPRAMIDE
     Route: 065
  120. METOCLOPRAMIDE [Suspect]
     Active Substance: METOCLOPRAMIDE
     Dosage: DOSAGE FORM - NOT SPECIFIED
     Route: 065
  121. METOCLOPRAMIDE [Suspect]
     Active Substance: METOCLOPRAMIDE
     Route: 065
  122. NITROGLYCERIN [Suspect]
     Active Substance: NITROGLYCERIN
     Indication: Prinzmetal angina
     Dosage: MYLAN-NITRO SUBLINGUAL SPRAY
     Route: 065
  123. NITROGLYCERIN [Suspect]
     Active Substance: NITROGLYCERIN
     Route: 048
  124. NITROGLYCERIN [Suspect]
     Active Substance: NITROGLYCERIN
     Route: 048
  125. NITROGLYCERIN [Suspect]
     Active Substance: NITROGLYCERIN
     Dosage: METERED-DOSE (AEROSOL)
     Route: 048
  126. NITRO-DUR [Suspect]
     Active Substance: NITROGLYCERIN
     Indication: Product used for unknown indication
     Dosage: EXTENDED RELEASE PATCH
     Route: 065
  127. NITRO-DUR [Suspect]
     Active Substance: NITROGLYCERIN
     Route: 065
  128. NITRO-DUR [Suspect]
     Active Substance: NITROGLYCERIN
     Route: 065
  129. ZOPICLONE [Suspect]
     Active Substance: ZOPICLONE
     Indication: Product used for unknown indication
     Route: 048
  130. ZOPICLONE [Suspect]
     Active Substance: ZOPICLONE
     Indication: Prinzmetal angina
     Route: 048
  131. ZOPICLONE [Suspect]
     Active Substance: ZOPICLONE
     Indication: Migraine
     Route: 048
  132. ZOPICLONE [Suspect]
     Active Substance: ZOPICLONE
     Route: 065
  133. ROSUVASTATIN [Suspect]
     Active Substance: ROSUVASTATIN\ROSUVASTATIN CALCIUM
     Indication: Prinzmetal angina
     Dosage: ROSUVASTATIN
     Route: 048
  134. ROSUVASTATIN [Suspect]
     Active Substance: ROSUVASTATIN\ROSUVASTATIN CALCIUM
     Indication: Migraine
     Dosage: ROSUVASTATIN
     Route: 065
  135. ROSUVASTATIN [Suspect]
     Active Substance: ROSUVASTATIN\ROSUVASTATIN CALCIUM
     Indication: Product used for unknown indication
     Dosage: ROSUVASTATIN
     Route: 065
  136. ROSUVASTATIN [Suspect]
     Active Substance: ROSUVASTATIN\ROSUVASTATIN CALCIUM
     Dosage: ROSUVASTATIN
     Route: 061
  137. ROSUVASTATIN [Suspect]
     Active Substance: ROSUVASTATIN\ROSUVASTATIN CALCIUM
     Dosage: ROSUVASTATIN
     Route: 048
  138. ROSUVASTATIN [Suspect]
     Active Substance: ROSUVASTATIN\ROSUVASTATIN CALCIUM
     Dosage: ROSUVASTATIN
     Route: 065
  139. ROSUVASTATIN [Suspect]
     Active Substance: ROSUVASTATIN\ROSUVASTATIN CALCIUM
     Dosage: ROSUVASTATIN
     Route: 065
  140. ROSUVASTATIN [Suspect]
     Active Substance: ROSUVASTATIN\ROSUVASTATIN CALCIUM
     Dosage: ROSUVASTATIN
     Route: 065
  141. ROSUVASTATIN [Suspect]
     Active Substance: ROSUVASTATIN\ROSUVASTATIN CALCIUM
     Dosage: ROSUVASTATIN
     Route: 065
  142. ROSUVASTATIN [Suspect]
     Active Substance: ROSUVASTATIN\ROSUVASTATIN CALCIUM
     Dosage: ROSUVASTATIN
     Route: 065
  143. ROSUVASTATIN [Suspect]
     Active Substance: ROSUVASTATIN\ROSUVASTATIN CALCIUM
     Dosage: ROSUVASTATIN
     Route: 065
  144. ROSUVASTATIN [Suspect]
     Active Substance: ROSUVASTATIN\ROSUVASTATIN CALCIUM
     Dosage: ROSUVASTATIN
     Route: 065
  145. ROSUVASTATIN [Suspect]
     Active Substance: ROSUVASTATIN\ROSUVASTATIN CALCIUM
     Dosage: ROSUVASTATIN
     Route: 065
  146. ROSUVASTATIN [Suspect]
     Active Substance: ROSUVASTATIN\ROSUVASTATIN CALCIUM
     Dosage: ROSUVASTATIN CALCIUM
     Route: 065
  147. ROSUVASTATIN [Suspect]
     Active Substance: ROSUVASTATIN\ROSUVASTATIN CALCIUM
     Dosage: ROSUVASTATIN CALCIUM
     Route: 065
  148. ROSUVASTATIN [Suspect]
     Active Substance: ROSUVASTATIN\ROSUVASTATIN CALCIUM
     Dosage: ROSUVASTATIN CALCIUM
     Route: 048
  149. ROSUVASTATIN [Suspect]
     Active Substance: ROSUVASTATIN\ROSUVASTATIN CALCIUM
     Dosage: ROSUVASTATIN CALCIUM
     Route: 048
  150. ROSUVASTATIN [Suspect]
     Active Substance: ROSUVASTATIN\ROSUVASTATIN CALCIUM
     Dosage: ROSUVASTATIN CALCIUM
     Route: 065
  151. ROSUVASTATIN [Suspect]
     Active Substance: ROSUVASTATIN\ROSUVASTATIN CALCIUM
     Dosage: ROSUVASTATIN CALCIUM
     Route: 065
  152. ROSUVASTATIN [Suspect]
     Active Substance: ROSUVASTATIN\ROSUVASTATIN CALCIUM
     Dosage: ROSUVASTATIN CALCIUM
     Route: 065
  153. ROSUVASTATIN [Suspect]
     Active Substance: ROSUVASTATIN\ROSUVASTATIN CALCIUM
     Dosage: ROSUVASTATIN CALCIUM
     Route: 065
  154. ROSUVASTATIN [Suspect]
     Active Substance: ROSUVASTATIN\ROSUVASTATIN CALCIUM
     Dosage: ROSUVASTATIN CALCIUM
     Route: 065
  155. ROSUVASTATIN [Suspect]
     Active Substance: ROSUVASTATIN\ROSUVASTATIN CALCIUM
     Dosage: ROSUVASTATIN CALCIUM
     Route: 065
  156. ROSUVASTATIN [Suspect]
     Active Substance: ROSUVASTATIN\ROSUVASTATIN CALCIUM
     Dosage: ROSUVASTATIN CALCIUM
     Route: 061
  157. ROSUVASTATIN [Suspect]
     Active Substance: ROSUVASTATIN\ROSUVASTATIN CALCIUM
     Dosage: ROSUVASTATIN CALCIUM
     Route: 048
  158. ROSUVASTATIN [Suspect]
     Active Substance: ROSUVASTATIN\ROSUVASTATIN CALCIUM
     Dosage: ROSUVASTATIN CALCIUM
     Route: 065
  159. ROSUVASTATIN [Suspect]
     Active Substance: ROSUVASTATIN\ROSUVASTATIN CALCIUM
     Dosage: ROSUVASTATIN CALCIUM
     Route: 065
  160. ROSUVASTATIN [Suspect]
     Active Substance: ROSUVASTATIN\ROSUVASTATIN CALCIUM
     Dosage: ROSUVASTATIN CALCIUM
     Route: 065
  161. ROSUVASTATIN [Suspect]
     Active Substance: ROSUVASTATIN\ROSUVASTATIN CALCIUM
     Dosage: ROSUVASTATIN CALCIUM
     Route: 065
  162. ROSUVASTATIN [Suspect]
     Active Substance: ROSUVASTATIN\ROSUVASTATIN CALCIUM
     Dosage: ROSUVASTATIN CALCIUM
     Route: 065
  163. ROSUVASTATIN [Suspect]
     Active Substance: ROSUVASTATIN\ROSUVASTATIN CALCIUM
     Dosage: ROSUVASTATIN CALCIUM
     Route: 065
  164. ROSUVASTATIN [Suspect]
     Active Substance: ROSUVASTATIN\ROSUVASTATIN CALCIUM
     Dosage: ROSUVASTATIN CALCIUM
     Route: 065
  165. ROSUVASTATIN [Suspect]
     Active Substance: ROSUVASTATIN\ROSUVASTATIN CALCIUM
     Dosage: ROSUVASTATIN CALCIUM
     Route: 065
  166. ROSUVASTATIN [Suspect]
     Active Substance: ROSUVASTATIN\ROSUVASTATIN CALCIUM
     Dosage: ROSUVASTATIN CALCIUM
  167. ROSUVASTATIN [Suspect]
     Active Substance: ROSUVASTATIN\ROSUVASTATIN CALCIUM
     Dosage: ROSUVASTATIN CALCIUM
  168. ROSUVASTATIN [Suspect]
     Active Substance: ROSUVASTATIN\ROSUVASTATIN CALCIUM
     Dosage: ROSUVASTATIN CALCIUM
  169. ROSUVASTATIN [Suspect]
     Active Substance: ROSUVASTATIN\ROSUVASTATIN CALCIUM
     Dosage: ROSUVASTATIN CALCIUM
  170. ROSUVASTATIN [Suspect]
     Active Substance: ROSUVASTATIN\ROSUVASTATIN CALCIUM
     Dosage: ROSUVASTATIN CALCIUM
  171. NASONEX [Suspect]
     Active Substance: MOMETASONE FUROATE
     Indication: Product used for unknown indication
     Dosage: INTRA-NASAL, SPRAY METERED DOSE
     Route: 045
  172. NASONEX [Suspect]
     Active Substance: MOMETASONE FUROATE
     Indication: Prinzmetal angina
     Route: 065
  173. NASONEX [Suspect]
     Active Substance: MOMETASONE FUROATE
     Indication: Migraine
     Dosage: SPRAY, METERED DOSE
     Route: 045
  174. BISOPROLOL [Suspect]
     Active Substance: BISOPROLOL\BISOPROLOL FUMARATE
     Indication: Prinzmetal angina
     Dosage: BISOPROLOL
     Route: 065
  175. BISOPROLOL [Suspect]
     Active Substance: BISOPROLOL\BISOPROLOL FUMARATE
     Indication: Migraine
     Dosage: BISOPROLOL
     Route: 048
  176. BISOPROLOL [Suspect]
     Active Substance: BISOPROLOL\BISOPROLOL FUMARATE
     Indication: Product used for unknown indication
     Dosage: BISOPROLOL
     Route: 065
  177. BISOPROLOL [Suspect]
     Active Substance: BISOPROLOL\BISOPROLOL FUMARATE
     Dosage: BISOPROLOL
     Route: 065
  178. BISOPROLOL [Suspect]
     Active Substance: BISOPROLOL\BISOPROLOL FUMARATE
     Dosage: BISOPROLOL FUMARATE
     Route: 048
  179. BISOPROLOL [Suspect]
     Active Substance: BISOPROLOL\BISOPROLOL FUMARATE
     Dosage: BISOPROLOL FUMARATE
     Route: 065
  180. BISOPROLOL [Suspect]
     Active Substance: BISOPROLOL\BISOPROLOL FUMARATE
     Route: 065
  181. ASPIRIN [Suspect]
     Active Substance: ASPIRIN
     Indication: Prinzmetal angina
     Route: 065
  182. ASPIRIN [Suspect]
     Active Substance: ASPIRIN
     Indication: Migraine
     Route: 065
  183. ASPIRIN [Suspect]
     Active Substance: ASPIRIN
     Indication: Product used for unknown indication
     Dosage: NOT SPECIFIED
     Route: 065
  184. ASPIRIN [Suspect]
     Active Substance: ASPIRIN
     Route: 048
  185. ASPIRIN [Suspect]
     Active Substance: ASPIRIN
     Dosage: NOT SPECIFIED
     Route: 065
  186. ASPIRIN [Suspect]
     Active Substance: ASPIRIN
     Route: 065
  187. ASPIRIN [Suspect]
     Active Substance: ASPIRIN
     Route: 048
  188. ASPIRIN [Suspect]
     Active Substance: ASPIRIN
     Route: 065
  189. ASPIRIN [Suspect]
     Active Substance: ASPIRIN
     Route: 048
  190. ASPIRIN [Suspect]
     Active Substance: ASPIRIN
     Route: 048
  191. ASPIRIN [Suspect]
     Active Substance: ASPIRIN
     Route: 065
  192. MOMETASONE [Suspect]
     Active Substance: MOMETASONE
     Indication: Product used for unknown indication
     Route: 065
  193. MOMETASONE [Suspect]
     Active Substance: MOMETASONE
     Dosage: 9 ADMINISTRATIONS GIVEN
     Route: 065
  194. MOMETASONE [Suspect]
     Active Substance: MOMETASONE
     Route: 065
  195. MOMETASONE [Suspect]
     Active Substance: MOMETASONE
     Route: 065
  196. MOMETASONE [Suspect]
     Active Substance: MOMETASONE
     Dosage: INTRA-NASAL, 32 ADMINISTRATIONS GIVEN
     Route: 045
  197. MOMETASONE [Suspect]
     Active Substance: MOMETASONE
     Dosage: NASAL SPRAY, SUSPENSION, 13 ADMINISTRATIONS GIVEN
     Route: 050
  198. MOMETASONE [Suspect]
     Active Substance: MOMETASONE
     Dosage: SPRAY, METERED DOSE, INTRA-NASAL
     Route: 045
  199. MOMETASONE [Suspect]
     Active Substance: MOMETASONE
     Dosage: NOT SPECIFIED, MOMETASONE FUROATE
     Route: 065
  200. MOMETASONE [Suspect]
     Active Substance: MOMETASONE
     Dosage: MOMETASONE FUROATE
     Route: 065
  201. MOMETASONE [Suspect]
     Active Substance: MOMETASONE
     Dosage: MOMETASONE FUROATE
     Route: 045
  202. MOMETASONE [Suspect]
     Active Substance: MOMETASONE
     Dosage: MOMETASONE FUROATE
     Route: 050
  203. ZOPICLONE [Suspect]
     Active Substance: ZOPICLONE
     Indication: Product used for unknown indication
     Route: 065
  204. ZOPICLONE [Suspect]
     Active Substance: ZOPICLONE
     Indication: Prinzmetal angina
     Route: 065
  205. ZOPICLONE [Suspect]
     Active Substance: ZOPICLONE
     Indication: Migraine
     Route: 065
  206. ZOPICLONE [Suspect]
     Active Substance: ZOPICLONE
     Route: 048
  207. ZOPICLONE [Suspect]
     Active Substance: ZOPICLONE
     Dosage: 2 ADMINISTRATIONS GIVEN
     Route: 048
  208. CLONAZEPAM [Suspect]
     Active Substance: CLONAZEPAM
     Indication: Prinzmetal angina
     Route: 048
  209. CLONAZEPAM [Suspect]
     Active Substance: CLONAZEPAM
     Indication: Migraine
     Route: 048
  210. CLONAZEPAM [Suspect]
     Active Substance: CLONAZEPAM
     Indication: Product used for unknown indication
     Route: 048
  211. CLONAZEPAM [Suspect]
     Active Substance: CLONAZEPAM
     Route: 065
  212. CLONAZEPAM [Suspect]
     Active Substance: CLONAZEPAM
     Route: 065
  213. CLONAZEPAM [Suspect]
     Active Substance: CLONAZEPAM
     Route: 048
  214. CLONAZEPAM [Suspect]
     Active Substance: CLONAZEPAM
     Route: 065
  215. CLONAZEPAM [Suspect]
     Active Substance: CLONAZEPAM
     Dosage: 2 ADMINISTRATIONS GIVEN
     Route: 048
  216. CLONAZEPAM [Suspect]
     Active Substance: CLONAZEPAM
     Dosage: 2 ADMINISTRATIONS GIVEN
     Route: 065
  217. TAMSULOSIN [Suspect]
     Active Substance: TAMSULOSIN
     Indication: Product used for unknown indication
     Dosage: TAMSULOSIN HYDROCHLORIDE
     Route: 065
  218. TAMSULOSIN [Suspect]
     Active Substance: TAMSULOSIN
     Dosage: TAMSULOSIN HYDROCHLORIDE
     Route: 048
  219. TAMSULOSIN [Suspect]
     Active Substance: TAMSULOSIN
     Dosage: TAMSULOSIN HYDROCHLORIDE
     Route: 065
  220. TAMSULOSIN [Suspect]
     Active Substance: TAMSULOSIN
     Dosage: TAMSULOSIN HYDROCHLORIDE
     Route: 048
  221. TAMSULOSIN [Suspect]
     Active Substance: TAMSULOSIN
     Dosage: TAMSULOSIN HYDROCHLORIDE
     Route: 048
  222. TAMSULOSIN [Suspect]
     Active Substance: TAMSULOSIN
     Dosage: TAMULOSIN TABLET (EXTENDED RELEASE)
     Route: 048
  223. TAMSULOSIN [Suspect]
     Active Substance: TAMSULOSIN
     Dosage: TAMULOSIN
     Route: 065
  224. TAMSULOSIN [Suspect]
     Active Substance: TAMSULOSIN
     Dosage: TAMULOSIN, NOT SPECIFIED DOSAGE FORM
     Route: 065
  225. NITROGLYCERIN [Suspect]
     Active Substance: NITROGLYCERIN
     Indication: Prinzmetal angina
     Dosage: GLYCERYL TRINITRATE
     Route: 048
  226. NITROGLYCERIN [Suspect]
     Active Substance: NITROGLYCERIN
     Indication: Migraine
     Dosage: GLYCERYL TRINITRATE
     Route: 048
  227. NITROGLYCERIN [Suspect]
     Active Substance: NITROGLYCERIN
     Dosage: GLYCERYL TRINITRATE
     Route: 048
  228. NITROGLYCERIN [Suspect]
     Active Substance: NITROGLYCERIN
     Dosage: GLYCERYL TRINITRATE
     Route: 048
  229. NITROGLYCERIN [Suspect]
     Active Substance: NITROGLYCERIN
     Dosage: GLYCERYL TRINITRATE
     Route: 048
  230. NITROGLYCERIN [Suspect]
     Active Substance: NITROGLYCERIN
     Dosage: GLYCERYL TRINITRATE
     Route: 048
  231. NITROGLYCERIN [Suspect]
     Active Substance: NITROGLYCERIN
     Dosage: NITROGLYCERIN
     Route: 048
  232. NITROGLYCERIN [Suspect]
     Active Substance: NITROGLYCERIN
     Dosage: NITROGLYCERIN
     Route: 048
  233. NITROGLYCERIN [Suspect]
     Active Substance: NITROGLYCERIN
     Dosage: NITROGLYCERIN
     Route: 048
  234. NITROGLYCERIN [Suspect]
     Active Substance: NITROGLYCERIN
     Dosage: NITROGLYCERIN
     Route: 065
  235. NITROGLYCERIN [Suspect]
     Active Substance: NITROGLYCERIN
     Dosage: NITROGLYCERIN
     Route: 048
  236. NITROGLYCERIN [Suspect]
     Active Substance: NITROGLYCERIN
     Dosage: NITROGLYCERIN
     Route: 048
  237. NITROGLYCERIN [Suspect]
     Active Substance: NITROGLYCERIN
     Dosage: NITROGLYCERIN
     Route: 049
  238. NITROGLYCERIN [Suspect]
     Active Substance: NITROGLYCERIN
     Dosage: NITROGLYCERIN
     Route: 048
  239. NITROGLYCERIN [Suspect]
     Active Substance: NITROGLYCERIN
     Dosage: NITROGLYCERIN
     Route: 048
  240. NITROGLYCERIN [Suspect]
     Active Substance: NITROGLYCERIN
     Dosage: NITROGLYCERIN
     Route: 048
  241. NITROGLYCERIN [Suspect]
     Active Substance: NITROGLYCERIN
     Dosage: NITROGLYCERIN
     Route: 048
  242. NITROGLYCERIN [Suspect]
     Active Substance: NITROGLYCERIN
     Dosage: NITROGLYCERIN
     Route: 048
  243. NITROGLYCERIN [Suspect]
     Active Substance: NITROGLYCERIN
     Dosage: NITROGLYCERIN
     Route: 030
  244. NITROGLYCERIN [Suspect]
     Active Substance: NITROGLYCERIN
     Dosage: NITROGLYCERIN
     Route: 061
  245. NITROGLYCERIN [Suspect]
     Active Substance: NITROGLYCERIN
     Dosage: NITROGLYCERIN
     Route: 065
  246. NITROGLYCERIN [Suspect]
     Active Substance: NITROGLYCERIN
     Dosage: NITROGLYCERIN
     Route: 065
  247. NITROGLYCERIN [Suspect]
     Active Substance: NITROGLYCERIN
     Dosage: NITROGLYCERIN
     Route: 065
  248. NITROGLYCERIN [Suspect]
     Active Substance: NITROGLYCERIN
     Dosage: NITROGLYCERIN
     Route: 065
  249. NITROGLYCERIN [Suspect]
     Active Substance: NITROGLYCERIN
     Dosage: NITROGLYCERIN
     Route: 065
  250. NITROGLYCERIN [Suspect]
     Active Substance: NITROGLYCERIN
     Dosage: NITROGLYCERIN
     Route: 065
  251. NITROGLYCERIN [Suspect]
     Active Substance: NITROGLYCERIN
     Dosage: NITROGLYCERIN
     Route: 065
  252. NITROGLYCERIN [Suspect]
     Active Substance: NITROGLYCERIN
     Dosage: NITROGLYCERIN
     Route: 048
  253. NITROGLYCERIN [Suspect]
     Active Substance: NITROGLYCERIN
     Dosage: NITROGLYCERIN
     Route: 065
  254. NITROGLYCERIN [Suspect]
     Active Substance: NITROGLYCERIN
     Dosage: NITROGLYCERIN
     Route: 030
  255. NITROGLYCERIN [Suspect]
     Active Substance: NITROGLYCERIN
     Dosage: NITROGLYCERIN
     Route: 030
  256. NITROGLYCERIN [Suspect]
     Active Substance: NITROGLYCERIN
     Dosage: NITROGLYCERIN
     Route: 030
  257. NITROGLYCERIN [Suspect]
     Active Substance: NITROGLYCERIN
     Dosage: NITROGLYCERIN
     Route: 065
  258. NITROGLYCERIN [Suspect]
     Active Substance: NITROGLYCERIN
     Dosage: NITROGLYCERIN
     Route: 048
  259. NITROGLYCERIN [Suspect]
     Active Substance: NITROGLYCERIN
     Dosage: NITROGLYCERIN
     Route: 065
  260. NITROGLYCERIN [Suspect]
     Active Substance: NITROGLYCERIN
     Dosage: NITROGLYCERIN
     Route: 030
  261. NITROGLYCERIN [Suspect]
     Active Substance: NITROGLYCERIN
     Dosage: NITROGLYCERIN
     Route: 065
  262. NITROGLYCERIN [Suspect]
     Active Substance: NITROGLYCERIN
     Dosage: NITROGLYCERIN
     Route: 048
  263. NITROGLYCERIN [Suspect]
     Active Substance: NITROGLYCERIN
     Dosage: NITROGLYCERIN
     Route: 065
  264. NITROGLYCERIN [Suspect]
     Active Substance: NITROGLYCERIN
     Dosage: NITROGLYCERIN
     Route: 048
  265. NITROGLYCERIN [Suspect]
     Active Substance: NITROGLYCERIN
     Dosage: NITROGLYCERIN
     Route: 065
  266. NITRO-DUR [Suspect]
     Active Substance: NITROGLYCERIN
     Indication: Product used for unknown indication
     Dosage: PATCH, EXTENDED RELEASE
     Route: 065
  267. NITRO-DUR [Suspect]
     Active Substance: NITROGLYCERIN
     Dosage: PATCH, EXTENDED RELEASE
     Route: 065
  268. NITRO-DUR [Suspect]
     Active Substance: NITROGLYCERIN
     Route: 048
  269. NITRO-DUR [Suspect]
     Active Substance: NITROGLYCERIN
     Route: 065
  270. NITRO-DUR [Suspect]
     Active Substance: NITROGLYCERIN
     Route: 048
  271. NITRO-DUR [Suspect]
     Active Substance: NITROGLYCERIN
     Route: 048
  272. NITRO-DUR [Suspect]
     Active Substance: NITROGLYCERIN
     Route: 048
  273. TICAGRELOR [Suspect]
     Active Substance: TICAGRELOR
     Indication: Product used for unknown indication
     Route: 065
  274. TICAGRELOR [Suspect]
     Active Substance: TICAGRELOR
     Indication: Prinzmetal angina
     Route: 065
  275. TICAGRELOR [Suspect]
     Active Substance: TICAGRELOR
     Indication: Migraine
     Route: 065
  276. TICAGRELOR [Suspect]
     Active Substance: TICAGRELOR
     Route: 048
  277. TICAGRELOR [Suspect]
     Active Substance: TICAGRELOR
     Route: 048
  278. ALPRAZOLAM [Suspect]
     Active Substance: ALPRAZOLAM
     Indication: Prinzmetal angina
     Route: 065
  279. ALPRAZOLAM [Suspect]
     Active Substance: ALPRAZOLAM
     Indication: Migraine
  280. ACETAMINOPHEN [Suspect]
     Active Substance: ACETAMINOPHEN
     Indication: Prinzmetal angina
     Dosage: NOT SPECIFIED
     Route: 065
  281. ACETAMINOPHEN [Suspect]
     Active Substance: ACETAMINOPHEN
     Indication: Migraine
     Dosage: NOT SPECIFIED
     Route: 065
  282. ACETAMINOPHEN [Suspect]
     Active Substance: ACETAMINOPHEN
     Indication: Product used for unknown indication
     Dosage: ACETAMINOPHEN AND CODEINE PHOSPHATE
     Route: 048
  283. ACETAMINOPHEN [Suspect]
     Active Substance: ACETAMINOPHEN
     Dosage: ACETAMINOPHEN AND CODEINE PHOSPHATE
     Route: 065
  284. ACETAMINOPHEN [Suspect]
     Active Substance: ACETAMINOPHEN
     Dosage: ACETAMINOPHEN AND CODEINE PHOSPHATE
     Route: 048
  285. ACETAMINOPHEN [Suspect]
     Active Substance: ACETAMINOPHEN
     Dosage: ACETAMINOPHEN AND CODEINE PHOSPHATE
     Route: 065
  286. ACETAMINOPHEN [Suspect]
     Active Substance: ACETAMINOPHEN
     Dosage: ACETAMINOPHEN AND CODEINE PHOSPHATE
     Route: 065
  287. ACETAMINOPHEN [Suspect]
     Active Substance: ACETAMINOPHEN
     Dosage: ACETAMINOPHEN + COD. PHOSP.?ELX.USP 160 MG-8 MG/5ML
     Route: 065
  288. ACETAMINOPHEN [Suspect]
     Active Substance: ACETAMINOPHEN
     Dosage: ACETAMINOPHEN + COD. PHOSP.?ELX.USP 160 MG-8 MG/5ML
     Route: 065
  289. ACETAMINOPHEN [Suspect]
     Active Substance: ACETAMINOPHEN
     Dosage: ACETAMINOPHEN + COD. PHOSP.?ELX.USP 160 MG-8 MG/5ML
     Route: 065
  290. ACETAMINOPHEN [Suspect]
     Active Substance: ACETAMINOPHEN
     Dosage: ACETAMINOPHEN + COD. PHOSP.?ELX.USP 160 MG-8 MG/5ML
     Route: 048
  291. ACETAMINOPHEN [Suspect]
     Active Substance: ACETAMINOPHEN
     Dosage: ACETAMINOPHEN + COD. PHOSP.
     Route: 048
  292. ACETAMINOPHEN [Suspect]
     Active Substance: ACETAMINOPHEN
     Dosage: ELIXIR, ACETAMINOPHEN AND COD.PHOS.ELX,USP160 MG-8MG/5ML
     Route: 065
  293. ACETAMINOPHEN [Suspect]
     Active Substance: ACETAMINOPHEN
     Dosage: ELIXIR, ACETAMINOPHEN AND COD.PHOS.ELX,USP160 MG-8MG/5ML
     Route: 065
  294. ACETAMINOPHEN [Suspect]
     Active Substance: ACETAMINOPHEN
     Route: 065
  295. ACETAMINOPHEN [Suspect]
     Active Substance: ACETAMINOPHEN
     Dosage: ACETAMINOPHEN/CODEINE PHOSPHATE
     Route: 065
  296. ACETAMINOPHEN [Suspect]
     Active Substance: ACETAMINOPHEN
     Route: 065
  297. AMLODIPINE [Suspect]
     Active Substance: AMLODIPINE BESYLATE
     Indication: Prinzmetal angina
     Dosage: AMLODIPINE
     Route: 065
  298. AMLODIPINE [Suspect]
     Active Substance: AMLODIPINE BESYLATE
     Indication: Migraine
     Dosage: AMLODIPINE BESILATE
     Route: 065
  299. AMLODIPINE [Suspect]
     Active Substance: AMLODIPINE BESYLATE
     Dosage: AMLODIPINE BESILATE
     Route: 065
  300. AMLODIPINE [Suspect]
     Active Substance: AMLODIPINE BESYLATE
     Dosage: AMLODIPINE BESILATE
     Route: 065
  301. AMLODIPINE [Suspect]
     Active Substance: AMLODIPINE BESYLATE
     Dosage: AMLODIPINE BESILATE
     Route: 065
  302. AMLODIPINE [Suspect]
     Active Substance: AMLODIPINE BESYLATE
     Dosage: AMLODIPINE BESILATE
     Route: 065
  303. AMLODIPINE [Suspect]
     Active Substance: AMLODIPINE BESYLATE
     Dosage: AMLODIPINE BESILATE
     Route: 065
  304. AMLODIPINE [Suspect]
     Active Substance: AMLODIPINE BESYLATE
     Dosage: AMLODIPINE BESILATE
     Route: 065
  305. AMLODIPINE [Suspect]
     Active Substance: AMLODIPINE BESYLATE
     Dosage: AMLODIPINE BESILATE
     Route: 065
  306. AMLODIPINE [Suspect]
     Active Substance: AMLODIPINE BESYLATE
     Dosage: AMLODIPINE BESILATE
     Route: 065
  307. AMLODIPINE [Suspect]
     Active Substance: AMLODIPINE BESYLATE
     Dosage: AMLODIPINE BESYLATE
     Route: 065
  308. AMLODIPINE [Suspect]
     Active Substance: AMLODIPINE BESYLATE
     Dosage: AMLODIPINE BESYLATE
     Route: 065
  309. AMLODIPINE [Suspect]
     Active Substance: AMLODIPINE BESYLATE
     Dosage: AMLODIPINE BESYLATE, 2 ADMINISTRATIONS GIVEN
     Route: 065
  310. AMLODIPINE [Suspect]
     Active Substance: AMLODIPINE BESYLATE
     Dosage: AMLODIPINE
     Route: 065
  311. LEVOTHYROXINE [Suspect]
     Active Substance: LEVOTHYROXINE\LEVOTHYROXINE SODIUM
     Indication: Prinzmetal angina
     Dosage: NOT SPECIFIED
     Route: 065
  312. LEVOTHYROXINE [Suspect]
     Active Substance: LEVOTHYROXINE\LEVOTHYROXINE SODIUM
     Indication: Migraine
     Dosage: LEVOTHYROXINE SODIUM
     Route: 065
  313. LEVOTHYROXINE [Suspect]
     Active Substance: LEVOTHYROXINE\LEVOTHYROXINE SODIUM
     Dosage: LEVOTHYROXINE SODIUM
     Route: 065
  314. LEVOTHYROXINE [Suspect]
     Active Substance: LEVOTHYROXINE\LEVOTHYROXINE SODIUM
     Dosage: LEVOTHYROXINE SODIUM
     Route: 065
  315. LEVOTHYROXINE [Suspect]
     Active Substance: LEVOTHYROXINE\LEVOTHYROXINE SODIUM
     Dosage: LEVOTHYROXINE SODIUM
     Route: 065
  316. BRILINTA [Suspect]
     Active Substance: TICAGRELOR
     Indication: Prinzmetal angina
     Route: 065
  317. BRILINTA [Suspect]
     Active Substance: TICAGRELOR
     Indication: Migraine
     Route: 048
  318. BRILINTA [Suspect]
     Active Substance: TICAGRELOR
     Indication: Product used for unknown indication
     Route: 065
  319. BRILINTA [Suspect]
     Active Substance: TICAGRELOR
     Route: 065
  320. BRILINTA [Suspect]
     Active Substance: TICAGRELOR
     Route: 048
  321. BRILINTA [Suspect]
     Active Substance: TICAGRELOR
     Route: 065
  322. BRILINTA [Suspect]
     Active Substance: TICAGRELOR
     Route: 065
  323. BRILINTA [Suspect]
     Active Substance: TICAGRELOR
     Route: 048
  324. BRILINTA [Suspect]
     Active Substance: TICAGRELOR
     Route: 048
  325. BRILINTA [Suspect]
     Active Substance: TICAGRELOR
     Route: 065
  326. BRILINTA [Suspect]
     Active Substance: TICAGRELOR
     Route: 065
  327. BRILINTA [Suspect]
     Active Substance: TICAGRELOR
     Route: 048
  328. BRILINTA [Suspect]
     Active Substance: TICAGRELOR
     Route: 065
  329. BRILINTA [Suspect]
     Active Substance: TICAGRELOR
     Dosage: 4 ADMINISTRATIONS GIVEN
     Route: 048
  330. BRILINTA [Suspect]
     Active Substance: TICAGRELOR
     Dosage: 4 ADMINISTRATIONS GIVEN
     Route: 065
  331. TRAZODONE HYDROCHLORIDE [Suspect]
     Active Substance: TRAZODONE HYDROCHLORIDE
     Indication: Product used for unknown indication
     Route: 065
  332. TRAZODONE HYDROCHLORIDE [Suspect]
     Active Substance: TRAZODONE HYDROCHLORIDE
     Route: 048
  333. TRAZODONE HYDROCHLORIDE [Suspect]
     Active Substance: TRAZODONE HYDROCHLORIDE
     Route: 065
  334. BISOPROLOL FUMARATE [Suspect]
     Active Substance: BISOPROLOL FUMARATE
     Indication: Product used for unknown indication
     Route: 065
  335. ASPIRIN [Suspect]
     Active Substance: ASPIRIN
     Indication: Prinzmetal angina
     Route: 048
  336. ASPIRIN [Suspect]
     Active Substance: ASPIRIN
     Indication: Migraine
     Route: 065
  337. ASPIRIN [Suspect]
     Active Substance: ASPIRIN
     Route: 048
  338. ASPIRIN [Suspect]
     Active Substance: ASPIRIN
     Route: 065
  339. ASPIRIN [Suspect]
     Active Substance: ASPIRIN
     Route: 065
  340. ASPIRIN [Suspect]
     Active Substance: ASPIRIN
     Route: 048
  341. MORNIFLUMATE [Suspect]
     Active Substance: MORNIFLUMATE
     Indication: Prinzmetal angina
     Route: 065
  342. MORNIFLUMATE [Suspect]
     Active Substance: MORNIFLUMATE
     Indication: Migraine
     Route: 065
  343. MORNIFLUMATE [Suspect]
     Active Substance: MORNIFLUMATE
     Route: 065
  344. CICLOPIROX [Suspect]
     Active Substance: CICLOPIROX
     Indication: Product used for unknown indication
     Dosage: CICLOPIROX OLAMINE
     Route: 065
  345. CICLOPIROX [Suspect]
     Active Substance: CICLOPIROX
     Dosage: CICLOPIROX
     Route: 048
  346. CICLOPIROX [Suspect]
     Active Substance: CICLOPIROX
     Dosage: CICLOPIROX
     Route: 048
  347. CICLOPIROX [Suspect]
     Active Substance: CICLOPIROX
     Dosage: CICLOPIROX
     Route: 048
  348. CICLOPIROX [Suspect]
     Active Substance: CICLOPIROX
     Dosage: CICLOPIROX OLAMINE
     Route: 048
  349. CICLOPIROX [Suspect]
     Active Substance: CICLOPIROX
     Dosage: CICLOPIROX OLAMINE
     Route: 048
  350. CICLOPIROX [Suspect]
     Active Substance: CICLOPIROX
     Dosage: CICLOPIROX OLAMINE
     Route: 065
  351. CICLOPIROX [Suspect]
     Active Substance: CICLOPIROX
     Dosage: CICLOPIROX OLAMINE, 6 ADMINISTRATIONS GIVEN
     Route: 065
  352. RIVOTRIL [Suspect]
     Active Substance: CLONAZEPAM
     Indication: Product used for unknown indication
     Route: 048
  353. RIVOTRIL [Suspect]
     Active Substance: CLONAZEPAM
     Indication: Prinzmetal angina
     Route: 048
  354. RIVOTRIL [Suspect]
     Active Substance: CLONAZEPAM
     Indication: Migraine
     Route: 048
  355. RIVOTRIL [Suspect]
     Active Substance: CLONAZEPAM
     Route: 048
  356. RIVOTRIL [Suspect]
     Active Substance: CLONAZEPAM
     Route: 065
  357. NITROGLYCERIN [Suspect]
     Active Substance: NITROGLYCERIN
     Indication: Prinzmetal angina
     Route: 048
  358. NITROGLYCERIN [Suspect]
     Active Substance: NITROGLYCERIN
     Route: 048
  359. NITROGLYCERIN [Suspect]
     Active Substance: NITROGLYCERIN
     Dosage: METERED-DOSE (AEROSOL)
     Route: 048
  360. ACETAMINOPHEN\CODEINE PHOSPHATE [Suspect]
     Active Substance: ACETAMINOPHEN\CODEINE PHOSPHATE
     Indication: Product used for unknown indication
     Dosage: ELIXIR
     Route: 065
  361. ACETAMINOPHEN\CODEINE PHOSPHATE [Suspect]
     Active Substance: ACETAMINOPHEN\CODEINE PHOSPHATE
     Dosage: 4 EVERY 1 DAYS
     Route: 065
  362. ACETAMINOPHEN\CODEINE PHOSPHATE [Suspect]
     Active Substance: ACETAMINOPHEN\CODEINE PHOSPHATE
     Dosage: 1 EVERY 6 HOURS
     Route: 065
  363. DEXLANSOPRAZOLE [Suspect]
     Active Substance: DEXLANSOPRAZOLE
     Indication: Product used for unknown indication
     Dosage: CAPSULE, DELAYED RELEASE
     Route: 065
  364. RAMIPRIL [Suspect]
     Active Substance: RAMIPRIL
     Indication: Product used for unknown indication
     Route: 065
  365. NASONEX [Suspect]
     Active Substance: MOMETASONE FUROATE
     Indication: Product used for unknown indication
     Dosage: INTRA-NASAL, SPRAY METERED DOSE
     Route: 065
  366. NASONEX [Suspect]
     Active Substance: MOMETASONE FUROATE
     Route: 055
  367. NASONEX [Suspect]
     Active Substance: MOMETASONE FUROATE
     Dosage: INTRA-NASAL
     Route: 065
  368. NASONEX [Suspect]
     Active Substance: MOMETASONE FUROATE
     Route: 065
  369. NASONEX [Suspect]
     Active Substance: MOMETASONE FUROATE
     Route: 065
  370. NASONEX [Suspect]
     Active Substance: MOMETASONE FUROATE
     Dosage: SPRAY METERED DOSE
     Route: 065
  371. SYNTHROID [Suspect]
     Active Substance: LEVOTHYROXINE SODIUM
     Indication: Product used for unknown indication
     Dosage: NOT SPECIFIED
     Route: 065
  372. SYNTHROID [Suspect]
     Active Substance: LEVOTHYROXINE SODIUM
     Route: 065
  373. SYNTHROID [Suspect]
     Active Substance: LEVOTHYROXINE SODIUM
     Dosage: NOT SPECIFIED
     Route: 065
  374. CODEINE [Suspect]
     Active Substance: CODEINE
     Indication: Product used for unknown indication
     Dosage: NOT SPECIFIED
     Route: 065
  375. HYDROMORPHONE [Suspect]
     Active Substance: HYDROMORPHONE
     Indication: Product used for unknown indication
     Route: 065
  376. HYDROMORPHONE [Suspect]
     Active Substance: HYDROMORPHONE
     Indication: Prinzmetal angina
  377. HYDROMORPHONE [Suspect]
     Active Substance: HYDROMORPHONE
     Indication: Migraine
  378. METOCLOPRAMIDE [Suspect]
     Active Substance: METOCLOPRAMIDE
     Indication: Migraine
     Dosage: METOCLOPRAMIDE HYDROCHLORIDE
     Route: 065
  379. METOCLOPRAMIDE [Suspect]
     Active Substance: METOCLOPRAMIDE
     Indication: Prinzmetal angina
     Dosage: METOCLOPRAMIDE HYDROCHLORIDE
     Route: 065
  380. METOCLOPRAMIDE [Suspect]
     Active Substance: METOCLOPRAMIDE
     Dosage: METOCLOPRAMIDE HYDROCHLORIDE
     Route: 065
  381. METOCLOPRAMIDE [Suspect]
     Active Substance: METOCLOPRAMIDE
     Dosage: METOCLOPRAMIDE HYDROCHLORIDE
     Route: 065
  382. METOCLOPRAMIDE [Suspect]
     Active Substance: METOCLOPRAMIDE
     Dosage: METOCLOPRAMIDE HYDROCHLORIDE
     Route: 065
  383. METOCLOPRAMIDE [Suspect]
     Active Substance: METOCLOPRAMIDE
     Dosage: METOCLOPRAMIDE HYDROCHLORIDE
     Route: 065
  384. METOCLOPRAMIDE [Suspect]
     Active Substance: METOCLOPRAMIDE
     Dosage: METOCLOPRAMIDE HYDROCHLORIDE
     Route: 048
  385. METOCLOPRAMIDE [Suspect]
     Active Substance: METOCLOPRAMIDE
     Dosage: METOCLOPRAMIDE HYDROCHLORIDE
     Route: 065
  386. METOCLOPRAMIDE [Suspect]
     Active Substance: METOCLOPRAMIDE
     Dosage: METOCLOPRAMIDE HYDROCHLORIDE
     Route: 065
  387. METOCLOPRAMIDE [Suspect]
     Active Substance: METOCLOPRAMIDE
     Dosage: METOCLOPRAMIDE HYDROCHLORIDE
     Route: 048
  388. METOCLOPRAMIDE [Suspect]
     Active Substance: METOCLOPRAMIDE
     Dosage: METOCLOPRAMIDE HYDROCHLORIDE
     Route: 065
  389. METOCLOPRAMIDE [Suspect]
     Active Substance: METOCLOPRAMIDE
     Dosage: METOCLOPRAMIDE HYDROCHLORIDE
     Route: 048
  390. METOCLOPRAMIDE [Suspect]
     Active Substance: METOCLOPRAMIDE
     Dosage: METOCLOPRAMIDE HYDROCHLORIDE
     Route: 065
  391. METOCLOPRAMIDE [Suspect]
     Active Substance: METOCLOPRAMIDE
     Dosage: METOCLOPRAMIDE HYDROCHLORIDE
     Route: 048
  392. METOCLOPRAMIDE [Suspect]
     Active Substance: METOCLOPRAMIDE
     Dosage: METOCLOPRAMIDE HYDROCHLORIDE
     Route: 048
  393. METOCLOPRAMIDE [Suspect]
     Active Substance: METOCLOPRAMIDE
     Dosage: METOCLOPRAMIDE HYDROCHLORIDE
     Route: 065
  394. METOCLOPRAMIDE [Suspect]
     Active Substance: METOCLOPRAMIDE
     Dosage: METOCLOPRAMIDE
     Route: 065
  395. HYDROCORTISONE PROBUTATE [Suspect]
     Active Substance: HYDROCORTISONE PROBUTATE
     Indication: Product used for unknown indication
     Route: 061
  396. ALPRAZOLAM [Suspect]
     Active Substance: ALPRAZOLAM
     Indication: Product used for unknown indication
     Route: 065
  397. NITROGLYCERIN [Suspect]
     Active Substance: NITROGLYCERIN
     Indication: Prinzmetal angina
     Route: 065
  398. NITROGLYCERIN [Suspect]
     Active Substance: NITROGLYCERIN
     Indication: Migraine
     Route: 065
  399. NITROGLYCERIN [Suspect]
     Active Substance: NITROGLYCERIN
     Dosage: 18 ADMINISTRATIONS GIVEN
     Route: 048
  400. NITROGLYCERIN [Suspect]
     Active Substance: NITROGLYCERIN
     Dosage: 3 ADMINISTRATIONS GIVEN
     Route: 030
  401. NITROGLYCERIN [Suspect]
     Active Substance: NITROGLYCERIN
     Route: 030
  402. NITROGLYCERIN [Suspect]
     Active Substance: NITROGLYCERIN
     Route: 065
  403. NITROGLYCERIN [Suspect]
     Active Substance: NITROGLYCERIN
     Route: 030
  404. NITROGLYCERIN [Suspect]
     Active Substance: NITROGLYCERIN
     Route: 065
  405. NITROGLYCERIN [Suspect]
     Active Substance: NITROGLYCERIN
     Route: 048
  406. NITROGLYCERIN [Suspect]
     Active Substance: NITROGLYCERIN
     Route: 048
  407. NITROGLYCERIN [Suspect]
     Active Substance: NITROGLYCERIN
     Route: 065
  408. NITROGLYCERIN [Suspect]
     Active Substance: NITROGLYCERIN
     Route: 065
  409. NITROGLYCERIN [Suspect]
     Active Substance: NITROGLYCERIN
     Route: 065
  410. NITROGLYCERIN [Suspect]
     Active Substance: NITROGLYCERIN
     Route: 065
  411. NITROGLYCERIN [Suspect]
     Active Substance: NITROGLYCERIN
     Route: 065
  412. NITROGLYCERIN [Suspect]
     Active Substance: NITROGLYCERIN
     Route: 048
  413. NITROGLYCERIN [Suspect]
     Active Substance: NITROGLYCERIN
     Dosage: 3 ADMINISTRATIONS GIVEN
     Route: 061
  414. NITROGLYCERIN [Suspect]
     Active Substance: NITROGLYCERIN
     Route: 048
  415. NITROGLYCERIN [Suspect]
     Active Substance: NITROGLYCERIN
     Route: 048
  416. NITROGLYCERIN [Suspect]
     Active Substance: NITROGLYCERIN
     Dosage: 41 ADMINISTRATIONS GIVEN
     Route: 065
  417. NITROGLYCERIN [Suspect]
     Active Substance: NITROGLYCERIN
     Route: 065
  418. NITROGLYCERIN [Suspect]
     Active Substance: NITROGLYCERIN
     Dosage: 3 EVERY 1 DAYS
     Route: 048
  419. NITROGLYCERIN [Suspect]
     Active Substance: NITROGLYCERIN
     Dosage: 2 EVERY 1 DAYS
     Route: 065
  420. NITROGLYCERIN [Suspect]
     Active Substance: NITROGLYCERIN
     Route: 065
  421. NITROGLYCERIN [Suspect]
     Active Substance: NITROGLYCERIN
     Route: 048
  422. NITROGLYCERIN [Suspect]
     Active Substance: NITROGLYCERIN
     Route: 065
  423. NITROGLYCERIN [Suspect]
     Active Substance: NITROGLYCERIN
     Route: 065
  424. NITROGLYCERIN [Suspect]
     Active Substance: NITROGLYCERIN
     Route: 065
  425. NITROGLYCERIN [Suspect]
     Active Substance: NITROGLYCERIN
     Dosage: 2 EVERY 1 WEEKS
     Route: 030
  426. NITROGLYCERIN [Suspect]
     Active Substance: NITROGLYCERIN
     Route: 030
  427. NITROGLYCERIN [Suspect]
     Active Substance: NITROGLYCERIN
     Route: 048
  428. ACETAMINOPHEN AND CODEINE [Suspect]
     Active Substance: ACETAMINOPHEN\CODEINE PHOSPHATE
     Indication: Product used for unknown indication
     Dosage: ELX,USP160 MG-8MG/5ML
     Route: 065
  429. ACETAMINOPHEN AND CODEINE [Suspect]
     Active Substance: ACETAMINOPHEN\CODEINE PHOSPHATE
     Dosage: ELX,USP160 MG-8MG/5ML
     Route: 065
  430. ACETAMINOPHEN AND CODEINE [Suspect]
     Active Substance: ACETAMINOPHEN\CODEINE PHOSPHATE
     Dosage: ELX,USP160 MG-8MG/5ML
     Route: 048
  431. ACETAMINOPHEN AND CODEINE [Suspect]
     Active Substance: ACETAMINOPHEN\CODEINE PHOSPHATE
     Dosage: ELX,USP160 MG-8MG/5ML, 4 EVERY 1 DAYS
     Route: 065
  432. ACETAMINOPHEN AND CODEINE [Suspect]
     Active Substance: ACETAMINOPHEN\CODEINE PHOSPHATE
     Dosage: ELX,USP160 MG-8MG/5ML, ELIXIR
     Route: 048
  433. ACETAMINOPHEN AND CODEINE [Suspect]
     Active Substance: ACETAMINOPHEN\CODEINE PHOSPHATE
     Route: 065
  434. AMLODIPINE BESYLATE [Suspect]
     Active Substance: AMLODIPINE BESYLATE
     Indication: Product used for unknown indication
     Route: 065
  435. AMLODIPINE BESYLATE [Suspect]
     Active Substance: AMLODIPINE BESYLATE
     Route: 065
  436. AMLODIPINE BESYLATE [Suspect]
     Active Substance: AMLODIPINE BESYLATE
     Route: 065
  437. AMLODIPINE BESYLATE [Suspect]
     Active Substance: AMLODIPINE BESYLATE
     Route: 065
  438. BISOPROLOL [Concomitant]
     Active Substance: BISOPROLOL\BISOPROLOL FUMARATE
     Indication: Prinzmetal angina
     Dosage: BISOPROLOL
     Route: 065
  439. BISOPROLOL [Concomitant]
     Active Substance: BISOPROLOL\BISOPROLOL FUMARATE
     Indication: Migraine
     Dosage: BISOPROLOL
     Route: 048
  440. BISOPROLOL [Concomitant]
     Active Substance: BISOPROLOL\BISOPROLOL FUMARATE
     Indication: Product used for unknown indication
     Dosage: BISOPROLOL
     Route: 065
  441. BISOPROLOL [Concomitant]
     Active Substance: BISOPROLOL\BISOPROLOL FUMARATE
     Dosage: BISOPROLOL, 3 ADMINISTRATIONS GIVEN
     Route: 048
  442. BISOPROLOL [Concomitant]
     Active Substance: BISOPROLOL\BISOPROLOL FUMARATE
     Dosage: BISOPROLOL
     Route: 065
  443. BISOPROLOL [Concomitant]
     Active Substance: BISOPROLOL\BISOPROLOL FUMARATE
     Dosage: BISOPROLOL FUMARATE
     Route: 048
  444. BISOPROLOL [Concomitant]
     Active Substance: BISOPROLOL\BISOPROLOL FUMARATE
     Dosage: BISOPROLOL FUMARATE
     Route: 065
  445. BISOPROLOL [Concomitant]
     Active Substance: BISOPROLOL\BISOPROLOL FUMARATE
     Dosage: BISOPROLOL FUMARATE
     Route: 065
  446. BISOPROLOL [Concomitant]
     Active Substance: BISOPROLOL\BISOPROLOL FUMARATE
     Dosage: 3 ADMINISTRATIONS
     Route: 048
  447. NITROGLYCERIN [Concomitant]
     Active Substance: NITROGLYCERIN
     Indication: Prinzmetal angina
     Route: 048
  448. ESCITALOPRAM OXALATE [Concomitant]
     Active Substance: ESCITALOPRAM OXALATE
     Indication: Product used for unknown indication
  449. RIVOTRIL [Concomitant]
     Active Substance: CLONAZEPAM
     Indication: Product used for unknown indication
     Dosage: 3 ADMINISTRATIONS GIVEN
  450. RIVOTRIL [Concomitant]
     Active Substance: CLONAZEPAM
  451. RIVOTRIL [Concomitant]
     Active Substance: CLONAZEPAM
     Route: 065
  452. RIVOTRIL [Concomitant]
     Active Substance: CLONAZEPAM
     Route: 065
  453. RIVOTRIL [Concomitant]
     Active Substance: CLONAZEPAM
     Route: 065
  454. RIVOTRIL [Concomitant]
     Active Substance: CLONAZEPAM
     Route: 048
  455. RIVOTRIL [Concomitant]
     Active Substance: CLONAZEPAM
     Route: 048
  456. RIVOTRIL [Concomitant]
     Active Substance: CLONAZEPAM
     Route: 048
  457. RIVOTRIL [Concomitant]
     Active Substance: CLONAZEPAM
     Dosage: 5 ADMINISTRATIONS GIVEN
     Route: 048
  458. RIVOTRIL [Concomitant]
     Active Substance: CLONAZEPAM
     Route: 048
  459. ASPIRIN [Concomitant]
     Active Substance: ASPIRIN
     Indication: Prinzmetal angina
     Route: 048
  460. ASPIRIN [Concomitant]
     Active Substance: ASPIRIN
     Indication: Migraine
     Route: 065
  461. ASPIRIN [Concomitant]
     Active Substance: ASPIRIN
     Indication: Product used for unknown indication
     Route: 065
  462. ASPIRIN [Concomitant]
     Active Substance: ASPIRIN
     Route: 065
  463. ASPIRIN [Concomitant]
     Active Substance: ASPIRIN
     Route: 065
  464. ASPIRIN [Concomitant]
     Active Substance: ASPIRIN
     Route: 065
  465. ASPIRIN [Concomitant]
     Active Substance: ASPIRIN
     Route: 065
  466. ASPIRIN [Concomitant]
     Active Substance: ASPIRIN
     Route: 048
  467. HYDROMORPHONE [Concomitant]
     Active Substance: HYDROMORPHONE
     Indication: Product used for unknown indication
     Route: 065
  468. PREDNISONE [Concomitant]
     Active Substance: PREDNISONE
     Indication: Prinzmetal angina
     Dosage: NOT SPECIFIED
     Route: 065
  469. PREDNISONE [Concomitant]
     Active Substance: PREDNISONE
     Indication: Migraine
  470. AMLODIPINE [Concomitant]
     Active Substance: AMLODIPINE BESYLATE
     Indication: Product used for unknown indication
     Dosage: AMLODIPINE
     Route: 065
  471. AMLODIPINE [Concomitant]
     Active Substance: AMLODIPINE BESYLATE
     Dosage: AMLODIPINE BESYLATE
     Route: 065
  472. HYDROCORTISONE [Concomitant]
     Active Substance: HYDROCORTISONE\HYDROCORTISONE ACETATE
     Indication: Prinzmetal angina
     Route: 061
  473. HYDROCORTISONE [Concomitant]
     Active Substance: HYDROCORTISONE\HYDROCORTISONE ACETATE
     Indication: Migraine
     Route: 061
  474. METOCLOPRAMIDE [Concomitant]
     Active Substance: METOCLOPRAMIDE
     Indication: Migraine
  475. NITROGLYCERIN [Concomitant]
     Active Substance: NITROGLYCERIN
     Indication: Prinzmetal angina
     Route: 048
  476. NITROGLYCERIN [Concomitant]
     Active Substance: NITROGLYCERIN
     Indication: Migraine
     Route: 048
  477. NITROGLYCERIN [Concomitant]
     Active Substance: NITROGLYCERIN
     Route: 065
  478. NITROGLYCERIN [Concomitant]
     Active Substance: NITROGLYCERIN
     Route: 048
  479. NITROGLYCERIN [Concomitant]
     Active Substance: NITROGLYCERIN
     Route: 065
  480. ZOPICLONE [Concomitant]
     Active Substance: ZOPICLONE
     Indication: Prinzmetal angina
     Route: 048
  481. ZOPICLONE [Concomitant]
     Active Substance: ZOPICLONE
     Indication: Migraine
     Route: 048
  482. BENZOYL PEROXIDE [Concomitant]
     Active Substance: BENZOYL PEROXIDE
     Indication: Product used for unknown indication
     Route: 061
  483. BENZOYL PEROXIDE [Concomitant]
     Active Substance: BENZOYL PEROXIDE
     Indication: Prinzmetal angina
     Route: 061
  484. BENZOYL PEROXIDE [Concomitant]
     Active Substance: BENZOYL PEROXIDE
     Indication: Migraine
  485. DEXILANT [Concomitant]
     Active Substance: DEXLANSOPRAZOLE
     Indication: Product used for unknown indication
  486. DEXILANT [Concomitant]
     Active Substance: DEXLANSOPRAZOLE
     Dosage: CAPSULE, DELAYED RELEASE
     Route: 048
  487. DEXILANT [Concomitant]
     Active Substance: DEXLANSOPRAZOLE
     Route: 048
  488. DEXILANT [Concomitant]
     Active Substance: DEXLANSOPRAZOLE
  489. DILTIAZEM [Concomitant]
     Active Substance: DILTIAZEM
     Indication: Prinzmetal angina
  490. DILTIAZEM [Concomitant]
     Active Substance: DILTIAZEM
     Indication: Migraine
     Route: 048
  491. DILTIAZEM [Concomitant]
     Active Substance: DILTIAZEM
     Route: 065
  492. ESCITALOPRAM [Concomitant]
     Active Substance: ESCITALOPRAM OXALATE
     Indication: Product used for unknown indication
     Dosage: ESCITALOPRAM
  493. ESCITALOPRAM [Concomitant]
     Active Substance: ESCITALOPRAM OXALATE
     Dosage: ESCITALOPRAM OXALATE
  494. MORNIFLUMATE [Concomitant]
     Active Substance: MORNIFLUMATE
     Indication: Prinzmetal angina
  495. MORNIFLUMATE [Concomitant]
     Active Substance: MORNIFLUMATE
     Indication: Migraine
     Route: 065
  496. RAMIPRIL [Concomitant]
     Active Substance: RAMIPRIL
     Indication: Prinzmetal angina
     Route: 048
  497. RAMIPRIL [Concomitant]
     Active Substance: RAMIPRIL
     Indication: Migraine
  498. RAMIPRIL [Concomitant]
     Active Substance: RAMIPRIL
  499. RAMIPRIL [Concomitant]
     Active Substance: RAMIPRIL
  500. RAMIPRIL [Concomitant]
     Active Substance: RAMIPRIL
     Route: 048
  501. RAMIPRIL [Concomitant]
     Active Substance: RAMIPRIL
     Route: 065
  502. RAMIPRIL [Concomitant]
     Active Substance: RAMIPRIL
     Route: 065
  503. TRAZODONE [Concomitant]
     Active Substance: TRAZODONE HYDROCHLORIDE
     Indication: Prinzmetal angina
     Route: 048
  504. TRAZODONE [Concomitant]
     Active Substance: TRAZODONE HYDROCHLORIDE
     Indication: Migraine
     Route: 065
  505. CICLOPIROX OLAMINE [Concomitant]
     Active Substance: CICLOPIROX OLAMINE
     Indication: Prinzmetal angina
     Route: 065
  506. CICLOPIROX OLAMINE [Concomitant]
     Active Substance: CICLOPIROX OLAMINE
     Indication: Migraine
     Route: 048
  507. CICLOPIROX OLAMINE [Concomitant]
     Active Substance: CICLOPIROX OLAMINE
     Indication: Product used for unknown indication
     Dosage: 6 ADMINISTRATION GIVEN
     Route: 065
  508. ACETAMINOPHEN\CODEINE PHOSPHATE [Concomitant]
     Active Substance: ACETAMINOPHEN\CODEINE PHOSPHATE
     Indication: Product used for unknown indication
     Dosage: ACETAMINOPHEN;CODEINE PHOSPHATE, 1 IN 6 HOURS
     Route: 065
  509. ACETAMINOPHEN\CODEINE PHOSPHATE [Concomitant]
     Active Substance: ACETAMINOPHEN\CODEINE PHOSPHATE
     Route: 048
  510. ACETAMINOPHEN\CODEINE PHOSPHATE [Concomitant]
     Active Substance: ACETAMINOPHEN\CODEINE PHOSPHATE
     Dosage: 1 EVERY 1 DAYS
     Route: 048
  511. NITROGLYCERIN [Concomitant]
     Active Substance: NITROGLYCERIN
     Indication: Prinzmetal angina
     Route: 048
  512. NITROGLYCERIN [Concomitant]
     Active Substance: NITROGLYCERIN
     Route: 048
  513. NITROGLYCERIN [Concomitant]
     Active Substance: NITROGLYCERIN
     Route: 048
  514. NASONEX [Concomitant]
     Active Substance: MOMETASONE FUROATE
     Indication: Product used for unknown indication
     Dosage: INTRA-NASAL, SPRAY METERED DOSE
     Route: 065
  515. NASONEX [Concomitant]
     Active Substance: MOMETASONE FUROATE
     Route: 055
  516. NASONEX [Concomitant]
     Active Substance: MOMETASONE FUROATE
     Dosage: INTRA-NASAL
     Route: 065
  517. NASONEX [Concomitant]
     Active Substance: MOMETASONE FUROATE
     Route: 065
  518. NASONEX [Concomitant]
     Active Substance: MOMETASONE FUROATE
     Route: 065
  519. SYNTHROID [Concomitant]
     Active Substance: LEVOTHYROXINE SODIUM
     Indication: Prinzmetal angina
     Dosage: NOT SPECIFIED
     Route: 065
  520. SYNTHROID [Concomitant]
     Active Substance: LEVOTHYROXINE SODIUM
     Indication: Migraine
  521. TESTOSTERONE [Concomitant]
     Active Substance: TESTOSTERONE
     Indication: Prinzmetal angina
     Dosage: NOT SPECIFIED
     Route: 065
  522. TESTOSTERONE [Concomitant]
     Active Substance: TESTOSTERONE
     Indication: Migraine
     Dosage: NOT SPECIFIED
     Route: 065

REACTIONS (4)
  - Drug ineffective [Unknown]
  - Device dislocation [Unknown]
  - Device malfunction [Unknown]
  - Product use in unapproved indication [Unknown]
